FAERS Safety Report 6171103-9 (Version None)
Quarter: 2009Q2

REPORT INFORMATION
  Report Type: 
  Country: None (occurrence: None)
  Receive Date: 20090429
  Receipt Date: 20090421
  Transmission Date: 20091009
  Serious: Yes (Other)
  Sender: FDA-Public Use
  Company Number: PHEH2009US03589

PATIENT
  Sex: Female

DRUGS (6)
  1. RECLAST [Suspect]
  2. DIOVAN [Concomitant]
  3. SIMVASTATIN [Concomitant]
     Dosage: 10 MG, UNK
  4. STATINS [Concomitant]
  5. DIURETICS [Concomitant]
  6. HYDROCHLOROTHIAZIDE [Concomitant]
     Dosage: 12 MG, UNK

REACTIONS (3)
  - ENDODONTIC PROCEDURE [None]
  - TOOTH EXTRACTION [None]
  - TOOTH INFECTION [None]
